FAERS Safety Report 25278288 (Version 2)
Quarter: 2025Q2

REPORT INFORMATION
  Report Type: Spontaneous
  Country: FR (occurrence: None)
  Receive Date: 20250507
  Receipt Date: 20250522
  Transmission Date: 20250716
  Serious: Yes (Other)
  Sender: Valinor Pharma
  Company Number: FR-Valinor Pharma, LLC-VLR202505-000093

PATIENT
  Age: 63 Year
  Sex: Male

DRUGS (2)
  1. NALOXEGOL OXALATE [Suspect]
     Active Substance: NALOXEGOL OXALATE
     Indication: Constipation
     Route: 048
  2. MORPHINE [Concomitant]
     Active Substance: MORPHINE
     Indication: Product used for unknown indication
     Route: 065

REACTIONS (2)
  - Intestinal obstruction [Recovered/Resolved]
  - Product dose omission issue [Unknown]
